FAERS Safety Report 9614962 (Version 1)
Quarter: 2013Q4

REPORT INFORMATION
  Report Type: Spontaneous
  Country: US (occurrence: US)
  Receive Date: 20131011
  Receipt Date: 20131011
  Transmission Date: 20140711
  Serious: No
  Sender: FDA-Public Use
  Company Number: US-PFIZER INC-2013289278

PATIENT
  Sex: 0

DRUGS (1)
  1. ADVIL [Suspect]
     Indication: PAIN
     Dosage: TWO IBUPROFEN IN THE MORNING AND TWO IN THE EVENING

REACTIONS (1)
  - Drug ineffective [Unknown]
